FAERS Safety Report 12652120 (Version 1)
Quarter: 2016Q3

REPORT INFORMATION
  Report Type: Spontaneous
  Country: US (occurrence: US)
  Receive Date: 20160815
  Receipt Date: 20160815
  Transmission Date: 20161109
  Serious: Yes (Hospitalization, Other)
  Sender: FDA-Public Use
  Company Number: US-GLAXOSMITHKLINE-US2016116226

PATIENT
  Sex: Male

DRUGS (9)
  1. ATORVASTATIN [Concomitant]
     Active Substance: ATORVASTATIN
  2. TYLENOL [Concomitant]
     Active Substance: ACETAMINOPHEN
  3. ADVAIR DISKUS [Suspect]
     Active Substance: FLUTICASONE PROPIONATE\SALMETEROL XINAFOATE
     Indication: ASTHMA
     Dosage: 1 PUFF(S), BID(250/50)
     Route: 055
  4. HYDROCODONE [Concomitant]
     Active Substance: HYDROCODONE
  5. IBUPROFEN. [Concomitant]
     Active Substance: IBUPROFEN
  6. ADVAIR DISKUS [Suspect]
     Active Substance: FLUTICASONE PROPIONATE\SALMETEROL XINAFOATE
     Dosage: 1 PUFF(S), QD (250/50)
  7. ADVAIR DISKUS [Suspect]
     Active Substance: FLUTICASONE PROPIONATE\SALMETEROL XINAFOATE
     Dosage: 1 PUFF(S), BID (250/50)
  8. LISINOPRIL. [Concomitant]
     Active Substance: LISINOPRIL
  9. OMEPRAZOLE. [Concomitant]
     Active Substance: OMEPRAZOLE

REACTIONS (17)
  - Respiratory tract congestion [Recovered/Resolved]
  - Crohn^s disease [Recovering/Resolving]
  - Gastrooesophageal reflux disease [Recovering/Resolving]
  - Drug dose omission [Recovered/Resolved]
  - Intentional product misuse [Unknown]
  - Pneumonia [Recovering/Resolving]
  - Back disorder [Recovering/Resolving]
  - Spinal column stenosis [Recovering/Resolving]
  - Inappropriate schedule of drug administration [Unknown]
  - Bronchitis [Recovered/Resolved]
  - Productive cough [Recovering/Resolving]
  - Back pain [Recovering/Resolving]
  - Dyspnoea [Recovering/Resolving]
  - Spinal operation [Recovering/Resolving]
  - Osteoarthritis [Not Recovered/Not Resolved]
  - Nasopharyngitis [Recovered/Resolved]
  - Blood cholesterol increased [Recovered/Resolved]

NARRATIVE: CASE EVENT DATE: 2007
